FAERS Safety Report 25858038 (Version 2)
Quarter: 2025Q4

REPORT INFORMATION
  Report Type: Report from Study
  Country: CA (occurrence: CA)
  Receive Date: 20250929
  Receipt Date: 20251001
  Transmission Date: 20260117
  Serious: Yes (Hospitalization)
  Sender: JOHNSON AND JOHNSON
  Company Number: CA-JNJFOC-20250932415

PATIENT
  Age: 53 Year
  Sex: Female
  Weight: 121 kg

DRUGS (1)
  1. SIMPONI [Suspect]
     Active Substance: GOLIMUMAB
     Indication: Ankylosing spondylitis
     Route: 058
     Dates: start: 20201001

REACTIONS (2)
  - Escherichia urinary tract infection [Not Recovered/Not Resolved]
  - Pulmonary embolism [Recovering/Resolving]
